FAERS Safety Report 7480660-1 (Version None)
Quarter: 2011Q2

REPORT INFORMATION
  Report Type: 
  Country: None (occurrence: None)
  Receive Date: 20110506
  Receipt Date: 20110420
  Transmission Date: 20111010
  Serious: Yes (Hospitalization)
  Sender: FDA-Public Use
  Company Number: 1000020611

PATIENT
  Age: 79 Year
  Sex: Female

DRUGS (8)
  1. BISOPROLOL FUMARATE [Suspect]
     Indication: CARDIOMYOPATHY
     Dosage: 2.5 MG (2.5 MG, 1 IN 1 D), ORAL
     Route: 048
     Dates: end: 20110215
  2. PREVISCAN (FLUINDIONE) [Suspect]
     Indication: ATRIAL FIBRILLATION
     Dosage: 20 MG (20 MG, 1 IN 1 D),
     Dates: end: 20110215
  3. ESCITALOPRAM [Suspect]
     Dosage: 20 MG (20 MG, 1 IN 1 D), ORAL
     Route: 048
     Dates: end: 20110215
  4. NORFLOXACIN [Suspect]
     Indication: URINARY TRACT INFECTION
     Dosage: 800 MG (400 MG, 2 IN 1 D), ORAL
     Route: 048
     Dates: start: 20110212, end: 20110215
  5. KARDEGIC (ACETYLSALICYLATE LYSINE) (POWDER) [Suspect]
     Indication: CARDIOMYOPATHY
     Dosage: 75 MG (75 MG, 1 IN 1 D), ORAL
     Route: 048
     Dates: end: 20110215
  6. LEVOTHYROXINE SODIUM [Suspect]
     Indication: THYROIDECTOMY
     Dosage: 100 UG (100 MCG, 1 IN 1 D), ORAL
     Route: 048
     Dates: end: 20110215
  7. NEXIUM [Concomitant]
  8. PRAVASTATIN SODIUM [Suspect]
     Indication: CARDIOMYOPATHY
     Dosage: 20 MG (20 MG, 1 IN 1 D), ORAL
     Route: 048
     Dates: end: 20110215

REACTIONS (9)
  - INTERNATIONAL NORMALISED RATIO INCREASED [None]
  - RED BLOOD CELL COUNT DECREASED [None]
  - EROSIVE DUODENITIS [None]
  - HAEMOGLOBIN DECREASED [None]
  - HYPOPARATHYROIDISM SECONDARY [None]
  - GASTROINTESTINAL HAEMORRHAGE [None]
  - GRAND MAL CONVULSION [None]
  - HYPOCALCAEMIA [None]
  - URINARY TRACT INFECTION [None]
